FAERS Safety Report 6706155-8 (Version None)
Quarter: 2010Q2

REPORT INFORMATION
  Report Type: 
  Country: None (occurrence: None)
  Receive Date: 20100429
  Receipt Date: 20100420
  Transmission Date: 20101027
  Serious: Yes (Death)
  Sender: FDA-Public Use
  Company Number: 2010040041

PATIENT
  Sex: Male

DRUGS (3)
  1. ONSOLIS [Suspect]
     Indication: CANCER PAIN
     Dosage: 200 MCG, Q 4 HOURS AS NEEDED, BU
     Route: 002
     Dates: start: 20091222, end: 20100101
  2. CIPRO [Suspect]
     Indication: CANCER PAIN
     Dosage: 500 MG (500 MG, 1 IN 1 D), ORAL
     Route: 048
     Dates: start: 20100101, end: 20100301
  3. DURAGESIC-100 [Concomitant]

REACTIONS (2)
  - MALIGNANT NEOPLASM PROGRESSION [None]
  - PANCREATIC CARCINOMA [None]
